FAERS Safety Report 16934844 (Version 1)
Quarter: 2019Q4

REPORT INFORMATION
  Report Type: Report from Study
  Country: CH (occurrence: CH)
  Receive Date: 20191018
  Receipt Date: 20191018
  Transmission Date: 20200122
  Serious: Yes (Other)
  Sender: FDA-Public Use
  Company Number: PHHO2009CH08364

PATIENT
  Age: 61 Year
  Sex: Male
  Weight: 99 kg

DRUGS (4)
  1. PANOBINOSTAT [Suspect]
     Active Substance: PANOBINOSTAT
     Indication: BLADDER CANCER
     Dosage: 30 MG, QD, CYCLE 2 DAY OF CYCLE 8
     Route: 048
     Dates: start: 20090526, end: 20090623
  2. PACLITAXEL. [Suspect]
     Active Substance: PACLITAXEL
     Indication: BLADDER CANCER
     Dosage: 135 MG/M2, CYCLE 2 DAY OF CYCLE 1
     Route: 065
     Dates: start: 20090526, end: 20090616
  3. CARBOPLATIN. [Suspect]
     Active Substance: CARBOPLATIN
     Indication: BLADDER CANCER
     Dosage: 5 G/ML,CYCLE 2, DAY OF CYCLE 1
     Route: 065
     Dates: start: 20090526, end: 20090616
  4. PANOBINOSTAT [Suspect]
     Active Substance: PANOBINOSTAT
     Dosage: 20 MG, QD
     Route: 048
     Dates: start: 20090706, end: 20091006

REACTIONS (2)
  - Thrombocytopenia [Recovered/Resolved]
  - Neutropenia [Unknown]

NARRATIVE: CASE EVENT DATE: 20090625
